FAERS Safety Report 24143343 (Version 1)
Quarter: 2024Q3

REPORT INFORMATION
  Report Type: Spontaneous
  Country: US (occurrence: US)
  Receive Date: 20240726
  Receipt Date: 20240726
  Transmission Date: 20241016
  Serious: No
  Sender: ELI LILLY AND CO
  Company Number: US-ELI_LILLY_AND_COMPANY-US202407010391

PATIENT
  Age: 78 Year
  Sex: Male

DRUGS (6)
  1. TALTZ [Suspect]
     Active Substance: IXEKIZUMAB
     Indication: Product used for unknown indication
     Dosage: UNK UNK, UNKNOWN
     Route: 058
     Dates: start: 2022
  2. TALTZ [Suspect]
     Active Substance: IXEKIZUMAB
     Indication: Product used for unknown indication
     Dosage: UNK UNK, UNKNOWN
     Route: 058
     Dates: start: 2022
  3. TALTZ [Suspect]
     Active Substance: IXEKIZUMAB
     Indication: Product used for unknown indication
     Dosage: UNK UNK, UNKNOWN
     Route: 058
     Dates: start: 2022
  4. TALTZ [Suspect]
     Active Substance: IXEKIZUMAB
     Dosage: UNK UNK, UNKNOWN
     Route: 058
  5. TALTZ [Suspect]
     Active Substance: IXEKIZUMAB
     Dosage: UNK UNK, UNKNOWN
     Route: 058
  6. TALTZ [Suspect]
     Active Substance: IXEKIZUMAB
     Dosage: UNK UNK, UNKNOWN
     Route: 058

REACTIONS (2)
  - Incorrect dose administered [Recovered/Resolved]
  - Injection site pain [Unknown]

NARRATIVE: CASE EVENT DATE: 20240712
